FAERS Safety Report 6960673-6 (Version None)
Quarter: 2010Q3

REPORT INFORMATION
  Report Type: 
  Country: None (occurrence: None)
  Receive Date: 20100901
  Receipt Date: 20100820
  Transmission Date: 20110219
  Serious: Yes (Disabling, Other)
  Sender: FDA-Public Use
  Company Number: US-ROCHE-432508

PATIENT
  Sex: Female
  Weight: 117.9 kg

DRUGS (2)
  1. ACCUTANE [Suspect]
     Route: 048
     Dates: start: 20040211, end: 20040411
  2. ACCUTANE [Suspect]
     Route: 048
     Dates: start: 20040412

REACTIONS (10)
  - ANAL FISTULA [None]
  - ARTHRITIS [None]
  - CROHN'S DISEASE [None]
  - EMOTIONAL DISTRESS [None]
  - GASTROOESOPHAGEAL REFLUX DISEASE [None]
  - HAEMORRHOIDS [None]
  - HEADACHE [None]
  - HIDRADENITIS [None]
  - INFLAMMATORY BOWEL DISEASE [None]
  - KERATOCONJUNCTIVITIS SICCA [None]
